FAERS Safety Report 12517915 (Version 1)
Quarter: 2016Q2

REPORT INFORMATION
  Report Type: Report from Study
  Country: JP (occurrence: JP)
  Receive Date: 20160630
  Receipt Date: 20160630
  Transmission Date: 20160815
  Serious: Yes (Other)
  Sender: FDA-Public Use
  Company Number: JP-AMGEN-JPNCT2016084473

PATIENT
  Age: 58 Year
  Sex: Female

DRUGS (4)
  1. SELBEX [Concomitant]
     Active Substance: TEPRENONE
     Indication: CHRONIC GASTRITIS
     Dosage: 50 MG, UNK
     Route: 048
  2. CINACALCET HCL [Suspect]
     Active Substance: CINACALCET HYDROCHLORIDE
     Indication: HYPERPARATHYROIDISM PRIMARY
     Dosage: 25 MG, BID
     Route: 048
     Dates: start: 20150603
  3. PILSICAINIDE HYDROCHLORIDE [Concomitant]
     Active Substance: PILSICAINIDE HYDROCHLORIDE
     Indication: ARRHYTHMIA
     Dosage: 150 MG, UNK
     Route: 048
  4. CINACALCET HCL [Suspect]
     Active Substance: CINACALCET HYDROCHLORIDE
     Dosage: 25 MG, QD
     Route: 048
     Dates: start: 20150709

REACTIONS (2)
  - Arrhythmia [Recovering/Resolving]
  - Abdominal discomfort [Recovering/Resolving]

NARRATIVE: CASE EVENT DATE: 20151209
